FAERS Safety Report 7031753-4 (Version None)
Quarter: 2010Q4

REPORT INFORMATION
  Report Type: 
  Country: None (occurrence: None)
  Receive Date: 20101007
  Receipt Date: 20100928
  Transmission Date: 20110411
  Serious: No
  Sender: FDA-Public Use
  Company Number: US-BIOGENIDEC-2010BI023966

PATIENT
  Age: 73 Year
  Sex: Female

DRUGS (2)
  1. TYSABRI [Suspect]
     Indication: MULTIPLE SCLEROSIS
     Route: 042
     Dates: start: 20050214, end: 20050214
  2. TYSABRI [Suspect]
     Route: 042
     Dates: start: 20100323

REACTIONS (12)
  - ANXIETY [None]
  - BLOOD PRESSURE DECREASED [None]
  - DEHYDRATION [None]
  - FALL [None]
  - MUSCLE SPASMS [None]
  - MUSCULAR WEAKNESS [None]
  - MYALGIA [None]
  - NASOPHARYNGITIS [None]
  - PALPITATIONS [None]
  - ROAD TRAFFIC ACCIDENT [None]
  - TEMPERATURE INTOLERANCE [None]
  - TREMOR [None]
